FAERS Safety Report 4817361-1 (Version None)
Quarter: 2005Q3

REPORT INFORMATION
  Report Type: 
  Country: None (occurrence: None)
  Receive Date: 20050929
  Receipt Date: 20050809
  Transmission Date: 20060218
  Serious: No
  Sender: FDA-Public Use
  Company Number: 05P-163-0285805-00

PATIENT
  Age: 71 Year
  Sex: Female
  Weight: 68.4932 kg

DRUGS (11)
  1. HUMIRA [Suspect]
     Indication: POLYMYALGIA RHEUMATICA
     Dosage: 40 MG, 1 IN 2 WK, SUBCUTANEOUS; 20 MG, 1 IN 1 WK, SUBCUTANEOUS
     Route: 058
     Dates: start: 20041001, end: 20050601
  2. HUMIRA [Suspect]
     Indication: POLYMYALGIA RHEUMATICA
     Dosage: 40 MG, 1 IN 2 WK, SUBCUTANEOUS; 20 MG, 1 IN 1 WK, SUBCUTANEOUS
     Route: 058
     Dates: start: 20050601
  3. ETANERCEPT [Concomitant]
  4. ALENDRONATE SODIUM [Concomitant]
  5. ATORVASTATIN CALCIUM [Concomitant]
  6. FLUOXETINE [Concomitant]
  7. TRAZODONE HCL [Concomitant]
  8. DIURETICS [Concomitant]
  9. HYDROCODONE [Concomitant]
  10. OXYCOCET [Concomitant]
  11. ACETAMINOPHEN [Concomitant]

REACTIONS (5)
  - INJECTION SITE NODULE [None]
  - INJECTION SITE PAIN [None]
  - INJECTION SITE PRURITUS [None]
  - INJECTION SITE URTICARIA [None]
  - INJECTION SITE WARMTH [None]
